FAERS Safety Report 24662876 (Version 2)
Quarter: 2025Q2

REPORT INFORMATION
  Report Type: Report from Study
  Country: BR (occurrence: BR)
  Receive Date: 20241126
  Receipt Date: 20250403
  Transmission Date: 20250717
  Serious: Yes (Hospitalization)
  Sender: BOEHRINGER INGELHEIM
  Company Number: BR-BoehringerIngelheim-2024-BI-063742

PATIENT
  Age: 71 Year
  Sex: Male
  Weight: 70 kg

DRUGS (8)
  1. JARDIANCE [Suspect]
     Active Substance: EMPAGLIFLOZIN
     Indication: Diabetes mellitus
     Dosage: IN THE MORNING AFTER BREAKFAST
  2. JARDIANCE [Suspect]
     Active Substance: EMPAGLIFLOZIN
     Dates: start: 202503
  3. LINAGLIPTIN [Suspect]
     Active Substance: LINAGLIPTIN
     Indication: Diabetes mellitus
     Dosage: 1 TABLET A DAY, IN THE MORNING
  4. METOPROLOL SUCCINATE [Concomitant]
     Active Substance: METOPROLOL SUCCINATE
     Indication: Hypertension
     Dosage: 1 TABLET IN THE MORNING AND 1 TABLET AT NIGHT
  5. ENALAPRIL [Concomitant]
     Active Substance: ENALAPRIL
     Indication: Hypertension
     Dosage: 1 TABLET IN THE MORNING AND 1 TABLET AT NIGHT
  6. METFORMIN HYDROCHLORIDE [Concomitant]
     Active Substance: METFORMIN HYDROCHLORIDE
     Indication: Diabetes mellitus
     Dosage: 2 TABLETS IN THE MORNING AND 2 TABLETS AT NIGHT
  7. GLIMEPIRIDE [Concomitant]
     Active Substance: GLIMEPIRIDE
     Indication: Diabetes mellitus
     Dosage: 1 TABLET IN THE MORNING
  8. GLIMEPIRIDE [Concomitant]
     Active Substance: GLIMEPIRIDE
     Indication: Diabetes mellitus
     Dosage: ONE TABLET IN THE MORNING AND ONE TABLET AT NIGHT

REACTIONS (9)
  - Abdominal pain [Recovered/Resolved]
  - Cholelithiasis [Recovered/Resolved]
  - Inflammation [Unknown]
  - Blood glucose increased [Unknown]
  - Cardiomegaly [Unknown]
  - Venous occlusion [Unknown]
  - Drug ineffective [Unknown]
  - Nephrolithiasis [Unknown]
  - Weight decreased [Unknown]

NARRATIVE: CASE EVENT DATE: 20240901
